FAERS Safety Report 7798469-8 (Version None)
Quarter: 2011Q4

REPORT INFORMATION
  Report Type: 
  Country: None (occurrence: None)
  Receive Date: 20111005
  Receipt Date: 20110928
  Transmission Date: 20120403
  Serious: Yes (Hospitalization)
  Sender: FDA-Public Use
  Company Number: US-B.I. PHARMACEUTICALS,INC./RIDGEFIELD-2011-BP-17210BP

PATIENT
  Sex: Female
  Weight: 49 kg

DRUGS (8)
  1. ASPIRIN [Concomitant]
  2. PRILOSEC [Concomitant]
  3. PREDNISONE [Concomitant]
  4. PRADAXA [Suspect]
     Indication: ATRIAL FIBRILLATION
     Dosage: 300 MG
  5. FLUTICASONE PROPIONATE [Concomitant]
  6. COZAAR [Concomitant]
  7. DIGOXIN [Concomitant]
  8. METOPROLOL TARTRATE [Concomitant]

REACTIONS (2)
  - PULMONARY HAEMORRHAGE [None]
  - HAEMOPTYSIS [None]
